FAERS Safety Report 6946695-X (Version None)
Quarter: 2010Q3

REPORT INFORMATION
  Report Type: 
  Country: None (occurrence: None)
  Receive Date: 20100827
  Receipt Date: 20090811
  Transmission Date: 20110219
  Serious: No
  Sender: FDA-Public Use
  Company Number: US-ABBOTT-09P-163-0590918-00

PATIENT
  Sex: Female
  Weight: 74.456 kg

DRUGS (5)
  1. NIASPAN [Suspect]
     Indication: LOW DENSITY LIPOPROTEIN INCREASED
     Dates: start: 20090728
  2. CYMBALTA [Concomitant]
     Indication: FIBROMYALGIA
  3. METHIMAZOLE [Concomitant]
     Indication: HYPERTHYROIDISM
  4. NEXIUM [Concomitant]
     Indication: GASTROOESOPHAGEAL REFLUX DISEASE
  5. CLARITIN [Concomitant]
     Indication: HYPERSENSITIVITY

REACTIONS (6)
  - ARTHRALGIA [None]
  - BACK PAIN [None]
  - CONSTIPATION [None]
  - FATIGUE [None]
  - JOINT SWELLING [None]
  - NECK PAIN [None]
